FAERS Safety Report 11432098 (Version 1)
Quarter: 2015Q3

REPORT INFORMATION
  Report Type: Spontaneous
  Country: US (occurrence: US)
  Receive Date: 20150828
  Receipt Date: 20150828
  Transmission Date: 20151125
  Serious: No
  Sender: FDA-Public Use
  Company Number: US-PFIZER INC-2015283993

PATIENT
  Sex: Male

DRUGS (4)
  1. WELLBUTRIN [Concomitant]
     Active Substance: BUPROPION HYDROCHLORIDE
     Dosage: UNK
  2. PRISTIQ EXTENDED RELEASE [Suspect]
     Active Substance: DESVENLAFAXINE SUCCINATE
     Indication: DEPRESSION
     Dosage: 50 MG, 2X/DAY
     Dates: start: 2012
  3. PRISTIQ EXTENDED RELEASE [Suspect]
     Active Substance: DESVENLAFAXINE SUCCINATE
     Dosage: 25 MG, UNK (1/2 TAB)
  4. PRISTIQ EXTENDED RELEASE [Suspect]
     Active Substance: DESVENLAFAXINE SUCCINATE
     Dosage: 12.5 MG, UNK (1/4 TAB)

REACTIONS (8)
  - Activities of daily living impaired [Unknown]
  - Feeling abnormal [Unknown]
  - Intentional product misuse [Unknown]
  - Drug withdrawal syndrome [Unknown]
  - Headache [Not Recovered/Not Resolved]
  - Disturbance in attention [Unknown]
  - Chills [Unknown]
  - Nausea [Unknown]
